FAERS Safety Report 8480193-X (Version None)
Quarter: 2012Q2

REPORT INFORMATION
  Report Type: 
  Country: None (occurrence: None)
  Receive Date: 20120629
  Receipt Date: 20120626
  Transmission Date: 20120825
  Serious: Yes (Hospitalization)
  Sender: FDA-Public Use
  Company Number: IN-MERCK-1206USA04957

PATIENT
  Age: 48 Year
  Sex: Female

DRUGS (2)
  1. NOROXIN [Suspect]
     Indication: URINARY TRACT INFECTION
     Route: 048
  2. ACETAMINOPHEN [Concomitant]
     Indication: PYREXIA
     Route: 065

REACTIONS (2)
  - HYPOGLYCAEMIA [None]
  - URTICARIA [None]
